FAERS Safety Report 23512177 (Version 1)
Quarter: 2024Q1

REPORT INFORMATION
  Report Type: Spontaneous
  Country: IT (occurrence: IT)
  Receive Date: 20240212
  Receipt Date: 20240212
  Transmission Date: 20240410
  Serious: Yes (Other)
  Sender: FDA-Public Use
  Company Number: IT-HIKMA PHARMACEUTICALS-IT-H14001-23-66707

PATIENT
  Age: 55 Year
  Sex: Male

DRUGS (4)
  1. BORTEZOMIB [Suspect]
     Active Substance: BORTEZOMIB
     Indication: Product used for unknown indication
     Dosage: 1.3MG/M2 OF THE BODY SURFACE AREA TWICE A WEEK FOR TWO WEEKS OVER A 35-DAYS TREATMENT COURSE
     Route: 065
  2. DEXAMETHASONE [Suspect]
     Active Substance: DEXAMETHASONE
     Indication: Product used for unknown indication
     Dosage: 40 MG WEEKLY
     Route: 065
  3. DUPILUMAB [Suspect]
     Active Substance: DUPILUMAB
     Indication: Product used for unknown indication
     Dosage: 300 MG EVERY TWO WEEKS
     Route: 065
  4. DUPILUMAB [Suspect]
     Active Substance: DUPILUMAB
     Dosage: 600 MG EVERY TWO WEEKS
     Route: 065

REACTIONS (2)
  - Hypotonia [Unknown]
  - Paraesthesia [Unknown]
